FAERS Safety Report 8789485 (Version 1)
Quarter: 2012Q4

REPORT INFORMATION
  Report Type: Spontaneous
  Country: US (occurrence: None)
  Receive Date: 20120910
  Receipt Date: 20120910
  Transmission Date: 20130627
  Serious: Yes (Hospitalization)
  Sender: FDA-Public Use
  Company Number: None

PATIENT
  Age: 69 Year
  Sex: Male
  Weight: 85.78 kg

DRUGS (4)
  1. LINIFANIB [Suspect]
     Route: 048
     Dates: start: 20120320, end: 20120720
  2. LINIFANIB [Suspect]
     Route: 048
     Dates: start: 20120320, end: 20120720
  3. LINIFANIB [Suspect]
     Route: 048
     Dates: start: 20120720, end: 20120817
  4. LINIFANIB [Suspect]
     Route: 048
     Dates: start: 20120720, end: 20120817

REACTIONS (3)
  - Skin toxicity [None]
  - Confusional state [None]
  - Hepatic function abnormal [None]
